FAERS Safety Report 5634587-8 (Version None)
Quarter: 2008Q1

REPORT INFORMATION
  Report Type: 
  Country: None (occurrence: None)
  Receive Date: 20080222
  Receipt Date: 20080212
  Transmission Date: 20080703
  Serious: Yes (Hospitalization)
  Sender: FDA-Public Use
  Company Number: JP-BAYER-200810032BYL

PATIENT
  Age: 64 Year
  Sex: Male
  Weight: 61 kg

DRUGS (9)
  1. ASPIRIN [Suspect]
     Indication: MYOCARDIAL INFARCTION
     Dosage: TOTAL DAILY DOSE: 100 MG  UNIT DOSE: 100 MG
     Route: 048
     Dates: start: 20020101, end: 20070213
  2. ASPENON [Concomitant]
     Route: 048
  3. VASOLAN [Concomitant]
     Route: 048
  4. TENORMIN [Concomitant]
     Route: 048
  5. MICARDIS [Concomitant]
     Route: 048
  6. JUVELA N [Concomitant]
     Route: 048
  7. CALTAN [Concomitant]
     Route: 048
  8. RENAGEL [Concomitant]
     Route: 048
  9. KALIMATE [Concomitant]
     Route: 048

REACTIONS (3)
  - HAEMATOCHEZIA [None]
  - LARGE INTESTINAL ULCER [None]
  - SHOCK HAEMORRHAGIC [None]
